FAERS Safety Report 7526119-4 (Version None)
Quarter: 2011Q2

REPORT INFORMATION
  Report Type: 
  Country: None (occurrence: None)
  Receive Date: 20110606
  Receipt Date: 20110531
  Transmission Date: 20111010
  Serious: Yes (Other)
  Sender: FDA-Public Use
  Company Number: CA-MERCK-1106USA00104

PATIENT
  Age: 64 Year
  Sex: Male
  Weight: 82 kg

DRUGS (8)
  1. VITAMINS (UNSPECIFIED) [Concomitant]
     Route: 065
  2. LOVAZA [Concomitant]
     Route: 065
  3. ZETIA [Suspect]
     Route: 048
  4. SAW PALMETTO [Concomitant]
     Route: 065
  5. CALCIUM CARBONATE [Concomitant]
     Route: 065
  6. CRESTOR [Concomitant]
     Route: 065
  7. ASPIRIN [Concomitant]
     Route: 065
  8. RABEPRAZOLE SODIUM [Concomitant]
     Route: 065

REACTIONS (3)
  - DIZZINESS [None]
  - BRADYCARDIA [None]
  - HEART RATE DECREASED [None]
